FAERS Safety Report 4521622-3 (Version None)
Quarter: 2004Q4

REPORT INFORMATION
  Report Type: 
  Country: None (occurrence: None)
  Receive Date: 20041208
  Receipt Date: 20041208
  Transmission Date: 20050328
  Serious: Yes (Other)
  Sender: FDA-Public Use
  Company Number: None

PATIENT
  Sex: Female
  Weight: 61.6892 kg

DRUGS (1)
  1. ACIPHEX [Suspect]
     Indication: GASTRITIS
     Dosage: 20 MG QD  ORAL
     Route: 048
     Dates: start: 20040226, end: 20040229

REACTIONS (3)
  - DRUG INEFFECTIVE [None]
  - RASH PAPULAR [None]
  - RASH PRURITIC [None]
